FAERS Safety Report 7729577-5 (Version None)
Quarter: 2011Q3

REPORT INFORMATION
  Report Type: 
  Country: None (occurrence: None)
  Receive Date: 20110906
  Receipt Date: 20110830
  Transmission Date: 20111222
  Serious: Yes (Other)
  Sender: FDA-Public Use
  Company Number: DE-JNJFOC-20110900450

PATIENT
  Age: 22 Year
  Sex: Male

DRUGS (3)
  1. NOVAMINSULFON [Concomitant]
     Route: 065
  2. TRAMADOL HYDROCHLORIDE [Suspect]
     Indication: LIGAMENT OPERATION
     Route: 065
  3. IBUPROFEN [Concomitant]
     Route: 065

REACTIONS (1)
  - TINNITUS [None]
